FAERS Safety Report 20702633 (Version 1)
Quarter: 2022Q2

REPORT INFORMATION
  Report Type: Other
  Country: CA (occurrence: None)
  Receive Date: 20220412
  Receipt Date: 20220412
  Transmission Date: 20220721
  Serious: Yes (Other)
  Sender: FDA-Public Use
  Company Number: CA-ROCHE-2137653

PATIENT
  Age: 47 Year
  Sex: Female
  Weight: 71.2 kg

DRUGS (15)
  1. ACTEMRA [Suspect]
     Active Substance: TOCILIZUMAB
     Indication: Polychondritis
     Route: 042
     Dates: start: 20180816
  2. ACTEMRA [Suspect]
     Active Substance: TOCILIZUMAB
     Route: 042
     Dates: start: 20190730
  3. PREDNISONE [Suspect]
     Active Substance: PREDNISONE
     Indication: Product used for unknown indication
     Route: 048
  4. REMICADE [Suspect]
     Active Substance: INFLIXIMAB
     Indication: Product used for unknown indication
     Route: 065
  5. ACTEMRA [Suspect]
     Active Substance: TOCILIZUMAB
     Indication: Polychondritis
     Route: 058
     Dates: start: 20180319, end: 201807
  6. METHOTREXATE [Concomitant]
     Active Substance: METHOTREXATE
     Route: 048
  7. ENALAPRIL [Concomitant]
     Active Substance: ENALAPRIL
  8. ATENOLOL [Concomitant]
     Active Substance: ATENOLOL
  9. INDAPAMIDE [Concomitant]
     Active Substance: INDAPAMIDE
  10. PANTOPRAZOLE [Concomitant]
     Active Substance: PANTOPRAZOLE
  11. RISEDRONATE SODIUM [Concomitant]
     Active Substance: RISEDRONATE SODIUM
  12. FOLIC ACID [Concomitant]
     Active Substance: FOLIC ACID
  13. FERROUS GLUCONATE [Concomitant]
     Active Substance: FERROUS GLUCONATE
  14. CALCIUM CARBONATE [Concomitant]
     Active Substance: CALCIUM CARBONATE
  15. VITAMIN C [Concomitant]
     Active Substance: ASCORBIC ACID

REACTIONS (21)
  - Aortitis [Unknown]
  - Polychondritis [Unknown]
  - Chest pain [Unknown]
  - Dyspnoea exertional [Unknown]
  - Nasal crusting [Unknown]
  - Dysphonia [Unknown]
  - Respiratory disorder [Not Recovered/Not Resolved]
  - Cardiac murmur [Unknown]
  - Red blood cell count decreased [Unknown]
  - Abdominal pain upper [Not Recovered/Not Resolved]
  - Mean cell haemoglobin increased [Unknown]
  - Treatment failure [Unknown]
  - Blood creatinine increased [Unknown]
  - Dyspnoea [Not Recovered/Not Resolved]
  - Drug ineffective [Unknown]
  - Platelet count decreased [Unknown]
  - Macrocytosis [Unknown]
  - Thrombocytopenia [Unknown]
  - Off label use [Unknown]
  - Off label use [Unknown]
  - Disease progression [Unknown]

NARRATIVE: CASE EVENT DATE: 20180501
